FAERS Safety Report 4850293-1 (Version None)
Quarter: 2005Q4

REPORT INFORMATION
  Report Type: 
  Country: None (occurrence: None)
  Receive Date: 20051123
  Receipt Date: 20050908
  Transmission Date: 20060501
  Serious: No
  Sender: FDA-Public Use
  Company Number: 217099

PATIENT
  Sex: Male

DRUGS (1)
  1. RAPTIVA [Suspect]
     Indication: PSORIASIS
     Dosage: 1 VIAL, 1/WEEK, SUBCUTANEOUS
     Route: 058
     Dates: start: 20050701

REACTIONS (1)
  - INJECTION SITE PAIN [None]
